FAERS Safety Report 8990051 (Version 2)
Quarter: 2013Q1

REPORT INFORMATION
  Report Type: Spontaneous
  Country: US (occurrence: US)
  Receive Date: 20121228
  Receipt Date: 20130117
  Transmission Date: 20140127
  Serious: Yes (Life-Threatening, Hospitalization, Other)
  Sender: FDA-Public Use
  Company Number: US-TARO-2012P1068239

PATIENT
  Age: 84 Year
  Sex: Male
  Weight: 90.72 kg

DRUGS (4)
  1. WARFARIN SODIUM TABLETS USP 5MG [Suspect]
     Indication: ATRIAL FIBRILLATION
     Route: 048
     Dates: start: 2002, end: 201212
  2. WARFARIN SODIUM TABLETS USP 3MG [Suspect]
     Indication: ATRIAL FIBRILLATION
     Route: 048
     Dates: start: 2002, end: 201212
  3. CEPHALEXIN 500MG [Suspect]
     Indication: CYSTITIS
     Dates: start: 201211
  4. ATENOLOL [Concomitant]

REACTIONS (10)
  - Aortic dissection [Recovered/Resolved]
  - Urinary tract infection [Recovered/Resolved]
  - Syncope [Recovered/Resolved]
  - Dizziness [Recovered/Resolved]
  - Peritoneal haemorrhage [Recovered/Resolved]
  - Malaise [Recovered/Resolved]
  - Asthenia [Not Recovered/Not Resolved]
  - Drug interaction [Recovered/Resolved]
  - Coagulopathy [Unknown]
  - Anaemia [Unknown]
